FAERS Safety Report 9098179 (Version 8)
Quarter: 2013Q2

REPORT INFORMATION
  Report Type: Report from Study
  Country: US (occurrence: US)
  Receive Date: 20130212
  Receipt Date: 20130513
  Transmission Date: 20140414
  Serious: Yes (Hospitalization)
  Sender: FDA-Public Use
  Company Number: US-VERTEX PHARMACEUTICALS INC.-2013-001199

PATIENT
  Age: 45 Year
  Sex: Male
  Weight: 73 kg

DRUGS (8)
  1. VX-950 (TELAPREVIR) [Suspect]
     Indication: HEPATITIS C
     Dosage: 750 MG, TID
     Route: 048
     Dates: start: 20130111, end: 20130405
  2. RIBASPHERE [Suspect]
     Indication: HEPATITIS C
     Dosage: 600 MG, BID
     Route: 048
     Dates: start: 20130111, end: 20130314
  3. RIBASPHERE [Suspect]
     Dosage: 600 MG, QD
     Route: 048
     Dates: start: 20130318, end: 20130418
  4. PEGASYS [Suspect]
     Indication: HEPATITIS C
     Dosage: 180 ?G, QW
     Route: 058
     Dates: start: 20130111
  5. PEGASYS [Suspect]
     Dosage: 135 ?G, WEEKLY
     Route: 058
     Dates: start: 20130301
  6. PEGASYS [Suspect]
     Dosage: 90 ?G, WEEKLY
     Route: 058
     Dates: start: 20130315, end: 20130418
  7. TRADJENTA [Concomitant]
  8. ZOFRAN [Concomitant]

REACTIONS (10)
  - Anaemia [Recovered/Resolved]
  - Platelet count decreased [Recovered/Resolved]
  - White blood cell count decreased [Recovered/Resolved]
  - Bleeding time prolonged [Unknown]
  - Insomnia [Recovered/Resolved]
  - Injection site rash [Recovered/Resolved]
  - Weight decreased [Recovered/Resolved]
  - Fatigue [Not Recovered/Not Resolved]
  - Vomiting [Recovered/Resolved]
  - Nausea [Not Recovered/Not Resolved]
